FAERS Safety Report 20876604 (Version 2)
Quarter: 2022Q2

REPORT INFORMATION
  Report Type: Report from Study
  Country: DE (occurrence: DE)
  Receive Date: 20220526
  Receipt Date: 20220622
  Transmission Date: 20220720
  Serious: Yes (Hospitalization)
  Sender: FDA-Public Use
  Company Number: DE-BRISTOL-MYERS SQUIBB COMPANY-2022-037501

PATIENT
  Age: 74 Year
  Sex: Male
  Weight: 96.00 kg

DRUGS (60)
  1. LENALIDOMIDE [Suspect]
     Active Substance: LENALIDOMIDE
     Indication: Plasma cell myeloma
     Dosage: 25 MG
     Route: 048
     Dates: start: 20190226, end: 20190304
  2. DEXAMETHASONE [Suspect]
     Active Substance: DEXAMETHASONE
     Indication: Plasma cell myeloma
     Route: 048
     Dates: start: 20190226
  3. BORTEZOMIB [Suspect]
     Active Substance: BORTEZOMIB
     Indication: Plasma cell myeloma
     Dosage: 1.30 MG/M2
     Route: 058
     Dates: start: 20190226
  4. HERBALS [Concomitant]
     Active Substance: HERBALS
  5. HERBALS [Concomitant]
     Active Substance: HERBALS
     Indication: Product used for unknown indication
  6. HERBALS [Concomitant]
     Active Substance: HERBALS
     Dosage: 160/120 MG
     Dates: start: 2017
  7. HERBALS [Concomitant]
     Active Substance: HERBALS
  8. IBANDRONIC ACID [Concomitant]
     Active Substance: IBANDRONIC ACID
  9. IBANDRONIC ACID [Concomitant]
     Active Substance: IBANDRONIC ACID
     Indication: Prophylaxis
     Dates: start: 20190430
  10. IBANDRONIC ACID [Concomitant]
     Active Substance: IBANDRONIC ACID
  11. POTASSIUM PHOSPHATE, MONOBASIC\SODIUM PHOSPHATE, DIBASIC, ANHYDROUS [Concomitant]
     Active Substance: POTASSIUM PHOSPHATE, MONOBASIC\SODIUM PHOSPHATE, DIBASIC, ANHYDROUS
  12. POTASSIUM PHOSPHATE, MONOBASIC\SODIUM PHOSPHATE, DIBASIC, ANHYDROUS [Concomitant]
     Active Substance: POTASSIUM PHOSPHATE, MONOBASIC\SODIUM PHOSPHATE, DIBASIC, ANHYDROUS
     Indication: Product used for unknown indication
     Dates: start: 20191005
  13. POTASSIUM PHOSPHATE, MONOBASIC\SODIUM PHOSPHATE, DIBASIC, ANHYDROUS [Concomitant]
     Active Substance: POTASSIUM PHOSPHATE, MONOBASIC\SODIUM PHOSPHATE, DIBASIC, ANHYDROUS
  14. BISOPROLOL [Concomitant]
     Active Substance: BISOPROLOL
  15. BISOPROLOL [Concomitant]
     Active Substance: BISOPROLOL
     Indication: Product used for unknown indication
     Dates: start: 20200212
  16. BISOPROLOL [Concomitant]
     Active Substance: BISOPROLOL
  17. TORSEMIDE [Concomitant]
     Active Substance: TORSEMIDE
  18. TORSEMIDE [Concomitant]
     Active Substance: TORSEMIDE
     Indication: Product used for unknown indication
     Dates: start: 20200225
  19. TORSEMIDE [Concomitant]
     Active Substance: TORSEMIDE
  20. MAGNETRANS [MAGNESIUM OXIDE] [Concomitant]
  21. MAGNETRANS [MAGNESIUM OXIDE] [Concomitant]
     Indication: Product used for unknown indication
     Dates: start: 20200305
  22. MAGNETRANS [MAGNESIUM OXIDE] [Concomitant]
  23. AMLODIPINE [Concomitant]
     Active Substance: AMLODIPINE BESYLATE
  24. AMLODIPINE [Concomitant]
     Active Substance: AMLODIPINE BESYLATE
     Indication: Product used for unknown indication
     Dates: start: 20200620, end: 20210802
  25. AMLODIPINE [Concomitant]
     Active Substance: AMLODIPINE BESYLATE
  26. PANTOPRAZOLE [Concomitant]
     Active Substance: PANTOPRAZOLE
  27. PANTOPRAZOLE [Concomitant]
     Active Substance: PANTOPRAZOLE
     Indication: Prophylaxis
     Dates: start: 20201020
  28. PANTOPRAZOLE [Concomitant]
     Active Substance: PANTOPRAZOLE
  29. CALCIUM CARBONATE\CHOLECALCIFEROL [Concomitant]
     Active Substance: CALCIUM CARBONATE\CHOLECALCIFEROL
  30. CALCIUM CARBONATE\CHOLECALCIFEROL [Concomitant]
     Active Substance: CALCIUM CARBONATE\CHOLECALCIFEROL
     Indication: Prophylaxis
     Dates: start: 20201019, end: 20211008
  31. CALCIUM CARBONATE\CHOLECALCIFEROL [Concomitant]
     Active Substance: CALCIUM CARBONATE\CHOLECALCIFEROL
  32. LEVOFLOXACIN [Concomitant]
     Active Substance: LEVOFLOXACIN
  33. LEVOFLOXACIN [Concomitant]
     Active Substance: LEVOFLOXACIN
     Indication: Product used for unknown indication
     Dates: start: 20210409, end: 20210420
  34. LEVOFLOXACIN [Concomitant]
     Active Substance: LEVOFLOXACIN
  35. CLARITHROMYCIN [Concomitant]
     Active Substance: CLARITHROMYCIN
  36. CLARITHROMYCIN [Concomitant]
     Active Substance: CLARITHROMYCIN
     Indication: Product used for unknown indication
  37. CLARITHROMYCIN [Concomitant]
     Active Substance: CLARITHROMYCIN
     Dates: start: 20210409, end: 20210420
  38. CLARITHROMYCIN [Concomitant]
     Active Substance: CLARITHROMYCIN
  39. LEVOTHYROXINE SODIUM [Concomitant]
     Active Substance: LEVOTHYROXINE SODIUM
  40. LEVOTHYROXINE SODIUM [Concomitant]
     Active Substance: LEVOTHYROXINE SODIUM
     Indication: Product used for unknown indication
  41. LEVOTHYROXINE SODIUM [Concomitant]
     Active Substance: LEVOTHYROXINE SODIUM
  42. LEVOTHYROXINE SODIUM [Concomitant]
     Active Substance: LEVOTHYROXINE SODIUM
  43. BUDESONIDE [Concomitant]
     Active Substance: BUDESONIDE
  44. BUDESONIDE [Concomitant]
     Active Substance: BUDESONIDE
     Indication: Product used for unknown indication
  45. BUDESONIDE [Concomitant]
     Active Substance: BUDESONIDE
     Dates: start: 20210407, end: 20210609
  46. BUDESONIDE [Concomitant]
     Active Substance: BUDESONIDE
  47. LAVENDER OIL [Concomitant]
     Active Substance: LAVENDER OIL
  48. LAVENDER OIL [Concomitant]
     Active Substance: LAVENDER OIL
     Indication: Product used for unknown indication
  49. LAVENDER OIL [Concomitant]
     Active Substance: LAVENDER OIL
     Dates: start: 2016, end: 20211027
  50. LAVENDER OIL [Concomitant]
     Active Substance: LAVENDER OIL
  51. LACTASE [Concomitant]
     Active Substance: LACTASE
  52. LACTASE [Concomitant]
     Active Substance: LACTASE
     Indication: Product used for unknown indication
  53. LACTASE [Concomitant]
     Active Substance: LACTASE
     Dates: start: 2009
  54. LACTASE [Concomitant]
     Active Substance: LACTASE
  55. OLMESARTAN [Concomitant]
     Active Substance: OLMESARTAN
  56. OLMESARTAN [Concomitant]
     Active Substance: OLMESARTAN
     Indication: Product used for unknown indication
  57. OLMESARTAN [Concomitant]
     Active Substance: OLMESARTAN
     Dates: start: 20190509, end: 20210729
  58. OLMESARTAN [Concomitant]
     Active Substance: OLMESARTAN
  59. APIXABAN [Concomitant]
     Active Substance: APIXABAN
     Indication: Prophylaxis
     Dates: start: 20191211
  60. CALCIUM CARBONATE [Concomitant]
     Active Substance: CALCIUM CARBONATE
     Indication: Prophylaxis

REACTIONS (1)
  - Osteoarthritis [Not Recovered/Not Resolved]

NARRATIVE: CASE EVENT DATE: 20210503
